FAERS Safety Report 4567646-1 (Version None)
Quarter: 2005Q1

REPORT INFORMATION
  Report Type: 
  Country: None (occurrence: None)
  Receive Date: 20050110
  Receipt Date: 20050110
  Transmission Date: 20050727
  Serious: No
  Sender: FDA-Public Use
  Company Number: None

PATIENT
  Sex: Male
  Weight: 61.7 kg

DRUGS (2)
  1. RITALIN-SR [Suspect]
     Indication: ATTENTION DEFICIT/HYPERACTIVITY DISORDER
     Dosage: 20 MG AM-LUNCH- 4 PM  ORALLY
     Route: 048
  2. RITALIN-SR [Suspect]
     Indication: AUTISM
     Dosage: 20 MG AM-LUNCH- 4 PM  ORALLY
     Route: 048

REACTIONS (3)
  - ABNORMAL BEHAVIOUR [None]
  - AFFECTIVE DISORDER [None]
  - PHARMACEUTICAL PRODUCT COMPLAINT [None]
